FAERS Safety Report 24715453 (Version 5)
Quarter: 2025Q3

REPORT INFORMATION
  Report Type: Spontaneous
  Country: US (occurrence: US)
  Receive Date: 20241210
  Receipt Date: 20250930
  Transmission Date: 20251021
  Serious: No
  Sender: SANOFI AVENTIS
  Company Number: US-SA-2024SA362650

PATIENT
  Age: 11 Year
  Sex: Female

DRUGS (5)
  1. DUPIXENT [Suspect]
     Active Substance: DUPILUMAB
     Indication: Eczema
     Dosage: 200 MG, QOW
     Route: 058
     Dates: start: 2023, end: 202409
  2. DUPIXENT [Suspect]
     Active Substance: DUPILUMAB
     Indication: Hypersensitivity
     Dosage: 200 MG, QOW
     Route: 058
     Dates: start: 202410, end: 2025
  3. DUPIXENT [Suspect]
     Active Substance: DUPILUMAB
     Indication: Dermatitis atopic
     Dosage: 200 MG, Q3W
     Route: 058
     Dates: start: 2025, end: 202508
  4. DUPIXENT [Suspect]
     Active Substance: DUPILUMAB
     Dosage: 200 MG, QOW
     Route: 058
     Dates: start: 202508
  5. TACROLIMUS [Concomitant]
     Active Substance: TACROLIMUS

REACTIONS (8)
  - Dermatitis atopic [Unknown]
  - Erythema [Unknown]
  - Eczema [Unknown]
  - Rebound effect [Unknown]
  - Product dose omission issue [Unknown]
  - Intentional product misuse [Unknown]
  - Product use in unapproved indication [Unknown]
  - Product dose omission in error [Unknown]

NARRATIVE: CASE EVENT DATE: 20230101
